FAERS Safety Report 12265818 (Version 1)
Quarter: 2016Q2

REPORT INFORMATION
  Report Type: Report from Study
  Country: US (occurrence: US)
  Receive Date: 20160413
  Receipt Date: 20160413
  Transmission Date: 20160815
  Serious: Yes (Other)
  Sender: FDA-Public Use
  Company Number: US-ARIAD PHARMACEUTICALS, INC-2016US006221

PATIENT
  Sex: Female

DRUGS (1)
  1. ICLUSIG [Suspect]
     Active Substance: PONATINIB
     Indication: MYELOID LEUKAEMIA
     Dosage: 45 MG, QD
     Route: 048
     Dates: start: 20160211

REACTIONS (8)
  - Blood pressure increased [Not Recovered/Not Resolved]
  - Headache [Not Recovered/Not Resolved]
  - Dry skin [Not Recovered/Not Resolved]
  - Constipation [Not Recovered/Not Resolved]
  - Chest pain [Not Recovered/Not Resolved]
  - Abdominal pain upper [Not Recovered/Not Resolved]
  - Cough [Not Recovered/Not Resolved]
  - Rash [Not Recovered/Not Resolved]
